FAERS Safety Report 5405456-3 (Version None)
Quarter: 2007Q3

REPORT INFORMATION
  Report Type: 
  Country: None (occurrence: None)
  Receive Date: 20070803
  Receipt Date: 20070726
  Transmission Date: 20080115
  Serious: Yes (Hospitalization)
  Sender: FDA-Public Use
  Company Number: PFIZER INC-2007061271

PATIENT
  Age: 56 Year
  Sex: Female
  Weight: 36.1 kg

DRUGS (1)
  1. SUTENT [Suspect]
     Indication: SQUAMOUS CELL CARCINOMA
     Route: 048

REACTIONS (9)
  - ABDOMINAL PAIN [None]
  - FATIGUE [None]
  - HAEMOGLOBIN [None]
  - HYPERGLYCAEMIA [None]
  - HYPOKALAEMIA [None]
  - HYPOMAGNESAEMIA [None]
  - HYPOTHYROIDISM [None]
  - HYPOXIA [None]
  - PNEUMONIA [None]
